FAERS Safety Report 4681893-X (Version None)
Quarter: 2005Q2

REPORT INFORMATION
  Report Type: 
  Country: None (occurrence: None)
  Receive Date: 20050602
  Receipt Date: 20050524
  Transmission Date: 20051028
  Serious: Yes (Life-Threatening, Other)
  Sender: FDA-Public Use
  Company Number: 2005074345

PATIENT
  Age: 72 Year
  Sex: Male

DRUGS (11)
  1. SULPERAZON (SULBACTAM, CEFOPERAZONE) [Suspect]
     Indication: PANCREATITIS ACUTE
     Dosage: 1 GRAM, INTRAVENOUS
     Route: 042
     Dates: end: 20050509
  2. BISOLVON (BROMHEXINE HYDROCHLORIDE) [Concomitant]
  3. LAC B (LACTOBACILLUS BIFIDUS, LYOPHILIZED) [Concomitant]
  4. BERIZYM (ENZYMES NOS) [Concomitant]
  5. SELBEX (TERPRENONE) [Concomitant]
  6. PANCREATIN (PANCREATN) [Concomitant]
  7. FOIPAN (CAMOSTAT MESILATE) [Concomitant]
  8. ZOLPIDEM TARTRATE [Concomitant]
  9. FAMOTIDINE [Concomitant]
  10. CATLEP (NDOMETACIN) [Concomitant]
  11. LACTATED RINGER'S [Concomitant]

REACTIONS (13)
  - ANAPHYLACTIC SHOCK [None]
  - BASE EXCESS NEGATIVE [None]
  - BLOOD PH DECREASED [None]
  - BLOOD PRESSURE DECREASED [None]
  - DYSPNOEA [None]
  - FLUSHING [None]
  - LOSS OF CONSCIOUSNESS [None]
  - PALPITATIONS [None]
  - PANCREATITIS ACUTE [None]
  - PCO2 DECREASED [None]
  - PO2 INCREASED [None]
  - SENSORY DISTURBANCE [None]
  - VOMITING [None]
